FAERS Safety Report 8015690-4 (Version None)
Quarter: 2011Q4

REPORT INFORMATION
  Report Type: 
  Country: None (occurrence: None)
  Receive Date: 20111230
  Receipt Date: 20111223
  Transmission Date: 20120403
  Serious: Yes (Hospitalization)
  Sender: FDA-Public Use
  Company Number: IN-AMGEN-INDCT2011046216

PATIENT
  Age: 39 Year
  Sex: Female
  Weight: 59 kg

DRUGS (6)
  1. DOMSTAL [Concomitant]
     Indication: NAUSEA
     Dosage: UNK
     Route: 048
     Dates: start: 20110809, end: 20110813
  2. PANITUMUMAB [Suspect]
     Indication: COLORECTAL CANCER METASTATIC
     Dosage: 348 MG, UNK
     Dates: start: 20110808
  3. TRAMADOL HCL [Concomitant]
     Indication: PROCTALGIA
     Dosage: UNK
     Route: 042
     Dates: start: 20110804, end: 20110815
  4. TRAMADOL HCL [Concomitant]
     Indication: PAIN
  5. PERINORM [Concomitant]
     Indication: VOMITING
     Dosage: UNK
     Route: 048
     Dates: start: 20110809, end: 20110813
  6. RABLET [Concomitant]
     Indication: GASTROOESOPHAGEAL REFLUX DISEASE
     Dosage: UNK
     Route: 048
     Dates: start: 20110809, end: 20110813

REACTIONS (1)
  - URINARY TRACT INFECTION [None]
